FAERS Safety Report 12236905 (Version 1)
Quarter: 2016Q2

REPORT INFORMATION
  Report Type: Spontaneous
  Country: US (occurrence: US)
  Receive Date: 20160405
  Receipt Date: 20160405
  Transmission Date: 20160815
  Serious: No
  Sender: FDA-Public Use
  Company Number: US-BAYER-2016-062052

PATIENT
  Age: 63 Year
  Sex: Male
  Weight: 74.83 kg

DRUGS (1)
  1. CHILDREN CLARITIN ALLERGY [Suspect]
     Active Substance: LORATADINE
     Indication: URTICARIA
     Dosage: 2 DF, QD
     Route: 048
     Dates: start: 20160330

REACTIONS (2)
  - Circumstance or information capable of leading to medication error [None]
  - Off label use [None]
